FAERS Safety Report 21422155 (Version 1)
Quarter: 2022Q4

REPORT INFORMATION
  Report Type: Report from Study
  Country: AT (occurrence: AT)
  Receive Date: 20221007
  Receipt Date: 20221007
  Transmission Date: 20230113
  Serious: Yes (Hospitalization)
  Sender: FDA-Public Use
  Company Number: AT-TAKEDA-ALL1-2013-08160

PATIENT
  Age: 35 Year
  Sex: Female
  Weight: 70 kg

DRUGS (5)
  1. ICATIBANT [Suspect]
     Active Substance: ICATIBANT ACETATE
     Indication: Hereditary angioedema
     Dosage: UNK
     Route: 065
     Dates: start: 20090422
  2. ICATIBANT [Suspect]
     Active Substance: ICATIBANT ACETATE
     Indication: Hereditary angioedema
     Dosage: UNK
     Route: 065
     Dates: start: 20090422
  3. ICATIBANT [Suspect]
     Active Substance: ICATIBANT ACETATE
     Dosage: UNK
     Route: 065
     Dates: start: 20110417
  4. ICATIBANT [Suspect]
     Active Substance: ICATIBANT ACETATE
     Dosage: UNK
     Route: 065
     Dates: start: 20110417
  5. ACETAMINOPHEN [Concomitant]
     Active Substance: ACETAMINOPHEN
     Indication: Cough
     Dosage: UNK, UNKNOWN
     Route: 065
     Dates: start: 20110425, end: 20110429

REACTIONS (1)
  - Productive cough [Recovered/Resolved]

NARRATIVE: CASE EVENT DATE: 20110425
